FAERS Safety Report 4954837-0 (Version None)
Quarter: 2006Q1

REPORT INFORMATION
  Report Type: 
  Country: None (occurrence: None)
  Receive Date: 20060327
  Receipt Date: 20051025
  Transmission Date: 20060701
  Serious: Yes (Hospitalization)
  Sender: FDA-Public Use
  Company Number: US-MERCK-0510USA09208

PATIENT
  Age: 62 Year
  Sex: Male
  Weight: 96 kg

DRUGS (48)
  1. VIOXX [Suspect]
     Indication: ARTHRITIS
     Route: 048
     Dates: start: 19991123, end: 20040101
  2. METOPROLOL [Concomitant]
     Route: 065
  3. GEMFIBROZIL [Concomitant]
     Route: 065
  4. NITROQUICK [Concomitant]
     Route: 065
  5. FLOMAX (MORNIFLUMATE) [Concomitant]
     Route: 065
  6. MONOPRIL [Concomitant]
     Route: 065
  7. PREVACID [Concomitant]
     Route: 065
  8. MECLIZINE [Concomitant]
     Route: 065
  9. CEPHALEXIN [Concomitant]
     Route: 065
  10. CLARITIN [Concomitant]
     Route: 065
  11. ERYTHROMYCIN [Concomitant]
     Route: 065
  12. SKELAXIN [Concomitant]
     Route: 065
  13. PREDNISONE [Concomitant]
     Route: 065
  14. LEVAQUIN [Concomitant]
     Route: 065
  15. LIPITOR [Concomitant]
     Route: 065
  16. ALLEGRA [Concomitant]
     Route: 065
  17. NASONEX [Concomitant]
     Route: 065
  18. CIPRO [Concomitant]
     Route: 065
  19. ZITHROMAX [Concomitant]
     Route: 065
  20. ISOSORBIDE [Concomitant]
     Route: 065
  21. HYDROCHLOROTHIAZIDE [Concomitant]
     Route: 048
  22. PRANDIN [Concomitant]
     Route: 065
  23. CIPROFLOXACIN [Concomitant]
     Route: 065
  24. NITROGLYCERIN [Concomitant]
     Route: 065
  25. FOSINOPRIL SODIUM [Concomitant]
     Route: 065
  26. ANDEHIST DM [Concomitant]
     Route: 065
  27. HYTRIN [Concomitant]
     Route: 065
  28. CARDIZEM CD [Concomitant]
     Route: 065
  29. CARDEC DM [Concomitant]
     Route: 065
  30. NASONEX [Concomitant]
     Route: 065
  31. VIAGRA [Concomitant]
     Route: 065
  32. WELLBUTRIN [Concomitant]
     Route: 065
  33. BUSPAR [Concomitant]
     Route: 065
  34. PLAVIX [Concomitant]
     Route: 065
  35. ATENOLOL [Concomitant]
     Route: 065
  36. AMOXICILLIN [Concomitant]
     Route: 065
  37. DOXYCYCLINE [Concomitant]
     Route: 065
  38. DILTIAZEM HYDROCHLORIDE [Concomitant]
     Route: 065
  39. ZOLOFT [Concomitant]
     Route: 065
  40. FLONASE [Concomitant]
     Route: 065
  41. ACETAMINOPHEN AND PROPOXYPHENE NAPSYLATE [Concomitant]
     Route: 065
  42. TERAZOSIN HYDROCHLORIDE [Concomitant]
     Route: 065
  43. RONDEC DM [Concomitant]
     Route: 065
  44. DICYCLOMINE HYDROCHLORIDE [Concomitant]
     Route: 065
  45. LOPRESSOR [Concomitant]
     Route: 065
  46. ULTRAM [Concomitant]
     Route: 065
  47. ACETAMINOPHEN AND HYDROCODONE BITARTRATE [Concomitant]
     Route: 065
  48. CYTUSS HC [Concomitant]
     Route: 065

REACTIONS (10)
  - ACUTE MYOCARDIAL INFARCTION [None]
  - CARDIOVASCULAR DISORDER [None]
  - CEREBROVASCULAR ACCIDENT [None]
  - CHEST DISCOMFORT [None]
  - CHEST PAIN [None]
  - CORONARY ARTERY DISEASE [None]
  - CORONARY ARTERY OCCLUSION [None]
  - DIZZINESS [None]
  - MYOCARDIAL INFARCTION [None]
  - PULMONARY EMBOLISM [None]
